FAERS Safety Report 17949291 (Version 1)
Quarter: 2020Q2

REPORT INFORMATION
  Report Type: Spontaneous
  Country: US (occurrence: US)
  Receive Date: 20200626
  Receipt Date: 20200626
  Transmission Date: 20200714
  Serious: Yes (Hospitalization, Other)
  Sender: FDA-Public Use
  Company Number: None

PATIENT
  Age: 79 Year
  Sex: Female
  Weight: 143.1 kg

DRUGS (4)
  1. ONDANSETRON 4MG IV X1 AT 2052 ON 6/20 [Concomitant]
     Dates: start: 20200620, end: 20200620
  2. AZITHROMYCIN 500MG PO QAM [Concomitant]
     Dates: start: 20200619, end: 20200621
  3. REMDESIVIR. [Suspect]
     Active Substance: REMDESIVIR
     Indication: COVID-19
     Dosage: ?          OTHER FREQUENCY:ONCE;?
     Route: 042
     Dates: start: 20200619, end: 20200620
  4. REMDESIVIR. [Suspect]
     Active Substance: REMDESIVIR
     Indication: COVID-19
     Dosage: ?          OTHER FREQUENCY:ONCE;?
     Route: 042
     Dates: start: 20200620, end: 20200621

REACTIONS (4)
  - Nodal rhythm [None]
  - Bundle branch block right [None]
  - Therapy cessation [None]
  - Heart rate decreased [None]

NARRATIVE: CASE EVENT DATE: 20200620
